FAERS Safety Report 8485743-5 (Version None)
Quarter: 2012Q3

REPORT INFORMATION
  Report Type: 
  Country: None (occurrence: None)
  Receive Date: 20120703
  Receipt Date: 20120619
  Transmission Date: 20120928
  Serious: Yes (Other)
  Sender: FDA-Public Use
  Company Number: US-ROCHE-1080669

PATIENT

DRUGS (3)
  1. SOMATROPIN [Suspect]
     Indication: PRODUCT USED FOR UNKNOWN INDICATION
     Route: 058
  2. AMBIEN [Concomitant]
  3. SINGULAIR [Concomitant]

REACTIONS (3)
  - NEPHROCALCINOSIS [None]
  - PAIN [None]
  - UNDERDOSE [None]
